FAERS Safety Report 7155731-X (Version None)
Quarter: 2010Q4

REPORT INFORMATION
  Report Type: 
  Country: None (occurrence: None)
  Receive Date: 20101123
  Receipt Date: 20100910
  Transmission Date: 20110411
  Serious: No
  Sender: FDA-Public Use
  Company Number: 018354

PATIENT
  Sex: Female
  Weight: 50 kg

DRUGS (3)
  1. CIMZIA [Suspect]
     Indication: CROHN'S DISEASE
     Dosage: 400 MG 1X/2 WEEKS SUBCUTANEOUS
     Route: 058
     Dates: start: 20100801, end: 20100901
  2. CIMZIA [Suspect]
     Indication: FISTULA
     Dosage: 400 MG 1X/2 WEEKS SUBCUTANEOUS
     Route: 058
     Dates: start: 20100801, end: 20100901
  3. TOPAMAX [Concomitant]

REACTIONS (2)
  - MIGRAINE [None]
  - NASOPHARYNGITIS [None]
